FAERS Safety Report 11447523 (Version 1)
Quarter: 2015Q3

REPORT INFORMATION
  Report Type: Spontaneous
  Country: US (occurrence: US)
  Receive Date: 20150831
  Receipt Date: 20150831
  Transmission Date: 20151125
  Serious: Yes (Other)
  Sender: FDA-Public Use
  Company Number: US-ELI_LILLY_AND_COMPANY-US200903002916

PATIENT
  Age: 69 Year
  Sex: Female

DRUGS (1)
  1. CYMBALTA [Suspect]
     Active Substance: DULOXETINE HYDROCHLORIDE
     Indication: BACK PAIN
     Dosage: 30 MG, UNK
     Dates: start: 20090308, end: 20090308

REACTIONS (16)
  - Blood pressure increased [Recovering/Resolving]
  - Malaise [Unknown]
  - Paraesthesia [Recovered/Resolved]
  - Muscular weakness [Unknown]
  - Fatigue [Unknown]
  - Mydriasis [Not Recovered/Not Resolved]
  - Drug hypersensitivity [Unknown]
  - Chest discomfort [Unknown]
  - Memory impairment [Unknown]
  - Muscle tightness [Unknown]
  - Swelling face [Not Recovered/Not Resolved]
  - Palpitations [Unknown]
  - Photophobia [Unknown]
  - Nausea [Recovered/Resolved]
  - Headache [Recovered/Resolved]
  - Eye swelling [Recovering/Resolving]

NARRATIVE: CASE EVENT DATE: 20090308
